FAERS Safety Report 10461602 (Version 1)
Quarter: 2014Q3

REPORT INFORMATION
  Report Type: Spontaneous
  Country: US (occurrence: None)
  Receive Date: 20140917
  Receipt Date: 20140917
  Transmission Date: 20150326
  Serious: Yes (Hospitalization)
  Sender: FDA-Public Use
  Company Number: None

PATIENT
  Age: 63 Year
  Sex: Male
  Weight: 76.3 kg

DRUGS (1)
  1. CETUXIMAB [Suspect]
     Active Substance: CETUXIMAB
     Dates: end: 20140903

REACTIONS (3)
  - Cough [None]
  - Incision site haemorrhage [None]
  - Arterial haemorrhage [None]

NARRATIVE: CASE EVENT DATE: 20140903
